FAERS Safety Report 19495295 (Version 1)
Quarter: 2021Q3

REPORT INFORMATION
  Report Type: Report from Study
  Country: None (occurrence: US)
  Receive Date: 20210705
  Receipt Date: 20210705
  Transmission Date: 20211014
  Serious: Yes (Hospitalization)
  Sender: FDA-Public Use
  Company Number: US-ABBVIE-21K-163-3972380-00

PATIENT
  Sex: Male
  Weight: 124.4 kg

DRUGS (2)
  1. HUMIRA [Suspect]
     Active Substance: ADALIMUMAB
     Route: 058
     Dates: start: 202103
  2. HUMIRA [Suspect]
     Active Substance: ADALIMUMAB
     Indication: PRODUCT USED FOR UNKNOWN INDICATION
     Route: 058
     Dates: start: 202102, end: 2021

REACTIONS (6)
  - Renal cyst [Unknown]
  - Nephropathy [Unknown]
  - Arthralgia [Unknown]
  - Burning sensation [Unknown]
  - Drug ineffective [Not Recovered/Not Resolved]
  - Renal disorder [Unknown]
